FAERS Safety Report 10676910 (Version 3)
Quarter: 2022Q3

REPORT INFORMATION
  Report Type: Spontaneous
  Country: IL (occurrence: IL)
  Receive Date: 20141226
  Receipt Date: 20220821
  Transmission Date: 20221027
  Serious: Yes (Hospitalization, Other)
  Sender: FDA-Public Use
  Company Number: IL-GLAXOSMITHKLINE-IL2014GSK040848

PATIENT
  Age: 78 Year
  Sex: Male

DRUGS (11)
  1. NEOTIGASON [Suspect]
     Active Substance: ACITRETIN
     Indication: Skin cancer
     Dosage: 25 MG, QD
     Route: 048
  2. PREDNISOLONE [Concomitant]
     Active Substance: PREDNISOLONE
     Dosage: 5 MG, UNK
  3. ASPIRIN [Concomitant]
     Active Substance: ASPIRIN
     Dosage: UNK
  4. LOSEC [Concomitant]
     Active Substance: OMEPRAZOLE
     Dosage: UNK
  5. SIMVASTATIN [Concomitant]
     Active Substance: SIMVASTATIN
     Dosage: UNK
  6. CERTICAN [Concomitant]
     Active Substance: EVEROLIMUS
     Indication: Renal transplant
     Dosage: 0.5 MG, BID
  7. ATENOLOL [Concomitant]
     Active Substance: ATENOLOL
     Dosage: UNK
  8. ALLOPURINOL [Concomitant]
     Active Substance: ALLOPURINOL
     Dosage: UNK
  9. WARFARIN SODIUM [Concomitant]
     Active Substance: WARFARIN SODIUM
     Dosage: UNK
  10. CALTRATE [Concomitant]
     Active Substance: CALCIUM CARBONATE
  11. VITAMIN D [Concomitant]
     Active Substance: VITAMIN D NOS

REACTIONS (1)
  - Pulmonary embolism [Recovered/Resolved]

NARRATIVE: CASE EVENT DATE: 20141101
